FAERS Safety Report 13010369 (Version 1)
Quarter: 2016Q4

REPORT INFORMATION
  Report Type: Spontaneous
  Country: US (occurrence: US)
  Receive Date: 20161207
  Receipt Date: 20161207
  Transmission Date: 20170207
  Serious: No
  Sender: FDA-Public Use
  Company Number: None

PATIENT
  Age: 71 Year
  Sex: Female
  Weight: 83.08 kg

DRUGS (1)
  1. CAPECITABINE 500 MYLAN [Suspect]
     Active Substance: CAPECITABINE
     Indication: NEOPLASM MALIGNANT
     Dosage: 1500AM/1000PM DAILY  X 14 DAYS PO
     Route: 048
     Dates: start: 20161017

REACTIONS (2)
  - Decreased appetite [None]
  - Weight decreased [None]
